FAERS Safety Report 7318884-6 (Version None)
Quarter: 2011Q1

REPORT INFORMATION
  Report Type: 
  Country: None (occurrence: None)
  Receive Date: 20110228
  Receipt Date: 20101130
  Transmission Date: 20110831
  Serious: No
  Sender: FDA-Public Use
  Company Number: US-MYLANLABS-2010S1022018

PATIENT
  Sex: Female

DRUGS (1)
  1. VALACYCLOVIR [Suspect]
     Indication: HERPES SIMPLEX
     Dates: start: 20100601

REACTIONS (2)
  - HERPES SIMPLEX [None]
  - DRUG INEFFECTIVE [None]
